FAERS Safety Report 20801675 (Version 3)
Quarter: 2022Q3

REPORT INFORMATION
  Report Type: Report from Study
  Country: US (occurrence: US)
  Receive Date: 20220509
  Receipt Date: 20220811
  Transmission Date: 20221027
  Serious: Yes (Other)
  Sender: FDA-Public Use
  Company Number: US-JNJFOC-20220505272

PATIENT
  Sex: Female
  Weight: 72.640 kg

DRUGS (1)
  1. REMICADE [Suspect]
     Active Substance: INFLIXIMAB
     Indication: Crohn^s disease
     Dates: start: 202006

REACTIONS (3)
  - Surgery [Unknown]
  - Hypersensitivity [Unknown]
  - Drug ineffective [Unknown]
